FAERS Safety Report 16880541 (Version 2)
Quarter: 2019Q4

REPORT INFORMATION
  Report Type: Spontaneous
  Country: US (occurrence: US)
  Receive Date: 20191003
  Receipt Date: 20191110
  Transmission Date: 20200122
  Serious: Yes (Other)
  Sender: FDA-Public Use
  Company Number: US-DRREDDYS-USA/USA/19/0114682

PATIENT
  Age: 73 Year
  Sex: Female

DRUGS (12)
  1. PREDNISONE. [Concomitant]
     Active Substance: PREDNISONE
  2. PREDNISONE. [Concomitant]
     Active Substance: PREDNISONE
     Dosage: REPEATED ATTEMPTS TO TAPER STEROIDS REMAINED UNSUCCESSFUL. TAPER WAS INITIATED
  3. VINBLASTINE [Suspect]
     Active Substance: VINBLASTINE
     Indication: HODGKIN^S DISEASE
     Route: 065
  4. BLEOMYCIN [Suspect]
     Active Substance: BLEOMYCIN SULFATE
     Indication: HODGKIN^S DISEASE
     Route: 065
  5. ZOLEDRONIC ACID INJECTION, 5 MG (BASE)/100 ML [Concomitant]
     Active Substance: ZOLEDRONIC ACID
     Indication: PRODUCT USED FOR UNKNOWN INDICATION
  6. PREDNISONE. [Concomitant]
     Active Substance: PREDNISONE
  7. DOXORUBICIN HYDROCHLORIDE LIPOSOME INJECTION 20 MG/10 ML (2 MG/ML) AND [Suspect]
     Active Substance: DOXORUBICIN HYDROCHLORIDE
     Indication: HODGKIN^S DISEASE
     Route: 065
  8. DACARBAZINE. [Suspect]
     Active Substance: DACARBAZINE
     Indication: HODGKIN^S DISEASE
     Route: 065
  9. PREDNISONE. [Concomitant]
     Active Substance: PREDNISONE
     Indication: SARCOIDOSIS
     Dosage: WITH A SLOW TAPER
  10. INFLIXIMAB [Concomitant]
     Active Substance: INFLIXIMAB
     Dosage: WITH REPEAT DOSES EVERY 8 WEEKS THEREAFTER
  11. INFLIXIMAB [Concomitant]
     Active Substance: INFLIXIMAB
     Indication: SARCOIDOSIS
     Dosage: INCREASED TO 5MG/KG EVERY 8 WEEKS.
  12. INFLIXIMAB [Concomitant]
     Active Substance: INFLIXIMAB
     Dosage: LOADING DOSES OF INFLIXIMAB, 3MG/KG, AT WEEKS 0, 2, AND 6

REACTIONS (1)
  - Neutropenia [Unknown]
